FAERS Safety Report 8438349-8 (Version None)
Quarter: 2012Q2

REPORT INFORMATION
  Report Type: 
  Country: None (occurrence: None)
  Receive Date: 20120614
  Receipt Date: 20120604
  Transmission Date: 20120825
  Serious: Yes (Hospitalization)
  Sender: FDA-Public Use
  Company Number: JP-AMGEN-JPNCT2012036967

PATIENT
  Age: 50 Year
  Sex: Female
  Weight: 69 kg

DRUGS (10)
  1. MUCOSTA [Concomitant]
     Dosage: UNK
  2. PURSENNID [Concomitant]
  3. LANSOPRAZOLE [Concomitant]
  4. ROZEREM [Concomitant]
     Dosage: UNK
  5. ROMIPLOSTIM - KHK [Suspect]
     Indication: IDIOPATHIC THROMBOCYTOPENIC PURPURA
     Dosage: 3.57 MUG/KG, QWK
     Route: 058
     Dates: start: 20110920, end: 20120307
  6. LENDORMIN [Concomitant]
  7. PREDNISOLONE [Suspect]
     Indication: IDIOPATHIC THROMBOCYTOPENIC PURPURA
     Dosage: 11 MG, UNK
     Route: 048
     Dates: start: 20110827
  8. ALENDRONATE SODIUM [Concomitant]
     Dosage: 5 MG, UNK
  9. ACETAMINOPHEN [Concomitant]
  10. ALLEGRA [Concomitant]

REACTIONS (5)
  - INSOMNIA [None]
  - HEADACHE [None]
  - RHINITIS ALLERGIC [None]
  - NEUTROPHIL COUNT INCREASED [None]
  - MYOCARDIAL INFARCTION [None]
